FAERS Safety Report 7995279-3 (Version None)
Quarter: 2011Q4

REPORT INFORMATION
  Report Type: 
  Country: None (occurrence: None)
  Receive Date: 20111220
  Receipt Date: 20111209
  Transmission Date: 20120403
  Serious: Yes (Hospitalization)
  Sender: FDA-Public Use
  Company Number: FR-JNJFOC-20110500158

PATIENT
  Sex: Male

DRUGS (8)
  1. ACETAMINOPHEN AND TRAMADOL HCL [Suspect]
     Indication: ARTHRALGIA
     Route: 048
     Dates: start: 20110105, end: 20110108
  2. GAVISCON(ALUMINIUM HYDROXIDE GEL, DRIED MAGNESIUM TRISILICATE) [Concomitant]
     Route: 065
  3. PANTOPRAZOLE SODIUM [Concomitant]
     Route: 065
  4. AOTAL [Concomitant]
  5. PROPRANOLOL [Concomitant]
  6. OXAZEPAM [Concomitant]
  7. OXAZEPAM [Concomitant]
  8. EFFEXOR [Concomitant]
     Route: 065

REACTIONS (1)
  - DERMATITIS EXFOLIATIVE [None]
